FAERS Safety Report 9580965 (Version 1)
Quarter: 2013Q4

REPORT INFORMATION
  Report Type: Spontaneous
  Country: US (occurrence: US)
  Receive Date: 20131002
  Receipt Date: 20131002
  Transmission Date: 20140711
  Serious: Yes (Other)
  Sender: FDA-Public Use
  Company Number: US-PFIZER INC-2013280811

PATIENT
  Age: 58 Year
  Sex: Female
  Weight: 50 kg

DRUGS (11)
  1. PREMARIN [Suspect]
     Indication: MENOPAUSAL SYMPTOMS
     Dosage: UNK, DAILY
     Route: 048
     Dates: start: 2006
  2. PREMARIN [Suspect]
     Dosage: UNK, EVERY OTHER DAY
     Route: 048
     Dates: start: 2013
  3. AMITRIPTYLINE [Concomitant]
     Dosage: UNK, DAILY
     Dates: end: 2013
  4. DIAZEPAM [Concomitant]
     Indication: MUSCLE SPASMS
     Dosage: 5 MG, AS NEEDED
  5. PROMETHAZINE [Concomitant]
     Dosage: 25 MG, AS NEEDED
  6. SUMATRIPTAN [Concomitant]
     Indication: MIGRAINE
     Dosage: 100 MG, AS NEEDED
     Route: 048
  7. NAPROXEN SODIUM [Concomitant]
     Dosage: 500 MG, AS NEEDED
  8. NORTRIPTYLINE [Concomitant]
     Dosage: UNK
     Dates: start: 2013
  9. BACLOFEN [Concomitant]
     Dosage: UNK
  10. ACETAMINOPHEN [Concomitant]
     Indication: BACK PAIN
     Dosage: UNK, AS NEEDED
  11. CODEINE [Concomitant]
     Indication: BACK PAIN
     Dosage: UNK, AS NEEDED

REACTIONS (6)
  - Shock [Unknown]
  - Gastrointestinal disorder [Unknown]
  - General physical health deterioration [Unknown]
  - Headache [Unknown]
  - Insomnia [Unknown]
  - Gastric disorder [Unknown]
